FAERS Safety Report 9174661 (Version 2)
Quarter: 2013Q4

REPORT INFORMATION
  Report Type: Spontaneous
  Country: US (occurrence: US)
  Receive Date: 20130320
  Receipt Date: 20131226
  Transmission Date: 20140711
  Serious: Yes (Other)
  Sender: FDA-Public Use
  Company Number: US-BAYER-2013-033287

PATIENT
  Age: 43 Year
  Sex: Female
  Weight: 81 kg

DRUGS (10)
  1. YAZ [Suspect]
  2. YASMIN [Suspect]
  3. OCELLA [Suspect]
  4. PROAIR HFA [Concomitant]
     Dosage: 2 PUFFS
     Dates: start: 20080423
  5. QVAR [Concomitant]
     Dosage: 40 MCG 1-2 PUFFS
     Dates: start: 20080423
  6. CYCLOBENZAPRINE [Concomitant]
     Dosage: 10 MG, BID
     Dates: start: 20080423
  7. NABUMETONE [Concomitant]
     Dosage: 500 MG, BID
     Dates: start: 20080423
  8. ABILIFY [Concomitant]
     Dosage: 2 MG, 1/2 TABLET DAILY
     Dates: start: 20080423
  9. ABILIFY [Concomitant]
     Dosage: 5 MG, 1/2 TAB 2 TIMES DAILY
     Dates: start: 20080423
  10. XANAX [Concomitant]
     Indication: ANXIETY
     Dosage: 0.5 MG, 1/2 TAB AS NEEDED
     Dates: start: 20080423

REACTIONS (4)
  - Cholecystectomy [None]
  - Cholecystitis chronic [None]
  - Injury [None]
  - Emotional distress [None]
